FAERS Safety Report 7424990-8 (Version None)
Quarter: 2011Q2

REPORT INFORMATION
  Report Type: 
  Country: None (occurrence: None)
  Receive Date: 20110419
  Receipt Date: 20110408
  Transmission Date: 20111010
  Serious: Yes (Life-Threatening, Hospitalization)
  Sender: FDA-Public Use
  Company Number: JP-CELGENEUS-TAJPN-10-0775

PATIENT
  Sex: Female
  Weight: 57 kg

DRUGS (9)
  1. GASTER D [Concomitant]
     Dosage: 40 MILLIGRAM
     Route: 048
  2. ETODOLAC [Concomitant]
     Dosage: 400 MILLIGRAM
     Route: 048
  3. FEMARA [Concomitant]
     Indication: BREAST CANCER METASTATIC
     Dosage: 2.5 MILLIGRAM
     Route: 048
     Dates: start: 20100401
  4. OXINORM [Concomitant]
     Route: 048
  5. OXYCONTIN [Concomitant]
     Dosage: 20 MILLIGRAM
     Route: 048
  6. MAGMITT [Concomitant]
     Dosage: 990 MILLIGRAM
     Route: 048
  7. METHYCOBAL [Concomitant]
     Dosage: 1500 MICROGRAM
     Route: 048
  8. MUCOSTA [Concomitant]
     Dosage: 300 MILLIGRAM
     Route: 048
  9. ABRAXANE [Suspect]
     Indication: BREAST CANCER METASTATIC
     Dosage: 300 MILLIGRAM
     Route: 065
     Dates: start: 20101221, end: 20101221

REACTIONS (4)
  - FEBRILE NEUTROPENIA [None]
  - WHITE BLOOD CELL COUNT DECREASED [None]
  - NEUTROPHIL COUNT DECREASED [None]
  - MYALGIA [None]
